FAERS Safety Report 20570350 (Version 1)
Quarter: 2022Q1

REPORT INFORMATION
  Report Type: Spontaneous
  Country: ID (occurrence: ID)
  Receive Date: 20220309
  Receipt Date: 20220309
  Transmission Date: 20220424
  Serious: No
  Sender: FDA-Public Use
  Company Number: ID-LUPIN PHARMACEUTICALS INC.-2022-02985

PATIENT
  Age: 31 Year
  Sex: Female

DRUGS (2)
  1. TRIAMCINOLONE ACETONIDE [Suspect]
     Active Substance: TRIAMCINOLONE ACETONIDE
     Indication: Tenosynovitis stenosans
     Dosage: 1 MILLILITER, SINGLE
     Route: 065
  2. LIDOCAINE HYDROCHLORIDE [Concomitant]
     Active Substance: LIDOCAINE HYDROCHLORIDE
     Indication: Medication dilution
     Dosage: 1 MILLILITER, SINGLE
     Route: 065

REACTIONS (3)
  - Skin hypopigmentation [Recovered/Resolved]
  - Lipoatrophy [Recovered/Resolved]
  - Injection site reaction [Recovered/Resolved]
